FAERS Safety Report 16633738 (Version 1)
Quarter: 2019Q3

REPORT INFORMATION
  Report Type: Spontaneous
  Country: US (occurrence: US)
  Receive Date: 20190725
  Receipt Date: 20190725
  Transmission Date: 20191004
  Serious: No
  Sender: FDA-Public Use
  Company Number: US-DERMIRA, INC.-US-2019DER000355

PATIENT
  Age: 20 Year
  Sex: Male

DRUGS (2)
  1. QBREXZA [Suspect]
     Active Substance: GLYCOPYRRONIUM TOSYLATE
     Indication: HYPERHIDROSIS
     Dosage: UNK, BID
     Route: 061
     Dates: start: 20190530, end: 20190531
  2. DRYSOL [Concomitant]
     Active Substance: ALUMINUM CHLORIDE
     Indication: HYPERHIDROSIS
     Dosage: 1 ML, QD
     Route: 061
     Dates: start: 20190530

REACTIONS (6)
  - Dry mouth [Recovered/Resolved]
  - Oropharyngeal pain [Recovered/Resolved]
  - Vision blurred [Recovered/Resolved]
  - Foaming at mouth [Recovered/Resolved]
  - Intentional product misuse [Recovered/Resolved]
  - Mydriasis [Recovered/Resolved]

NARRATIVE: CASE EVENT DATE: 20190530
